APPROVED DRUG PRODUCT: LEVETIRACETAM
Active Ingredient: LEVETIRACETAM
Strength: 100MG/ML
Dosage Form/Route: SOLUTION;ORAL
Application: A090028 | Product #001
Applicant: PHARMOBEDIENT CONSULTING
Approved: Mar 3, 2010 | RLD: No | RS: No | Type: DISCN